FAERS Safety Report 15472417 (Version 2)
Quarter: 2018Q4

REPORT INFORMATION
  Report Type: Spontaneous
  Country: US (occurrence: US)
  Receive Date: 20181008
  Receipt Date: 20181016
  Transmission Date: 20190205
  Serious: Yes (Hospitalization, Other)
  Sender: FDA-Public Use
  Company Number: US-DRREDDYS-USA/USA/18/0104598

PATIENT
  Age: 69 Year
  Sex: Male

DRUGS (2)
  1. PREDNISONE. [Suspect]
     Active Substance: PREDNISONE
     Indication: ASTHMA
     Dosage: SHORT COURSES
     Route: 065
  2. IBUPROFEN. [Suspect]
     Active Substance: IBUPROFEN
     Indication: BACK PAIN
     Dosage: TWO TO THREE PILLS ALMOST ON A DAILY BASIS
     Route: 065

REACTIONS (4)
  - Peptic ulcer [Recovering/Resolving]
  - Fistula of small intestine [Recovering/Resolving]
  - Haemoglobin decreased [Recovering/Resolving]
  - Duodenal ulcer haemorrhage [Recovered/Resolved]
